FAERS Safety Report 8341181-7 (Version None)
Quarter: 2012Q2

REPORT INFORMATION
  Report Type: 
  Country: None (occurrence: None)
  Receive Date: 20120507
  Receipt Date: 20120409
  Transmission Date: 20120825
  Serious: Yes (Other)
  Sender: FDA-Public Use
  Company Number: US-BAYER-2012-033095

PATIENT
  Age: 71 Year
  Sex: Male
  Weight: 102.06 kg

DRUGS (6)
  1. LIPITOR [Concomitant]
     Indication: BLOOD CHOLESTEROL INCREASED
     Dosage: 40 MG, HS
     Dates: start: 20090101
  2. ATENOLOL [Concomitant]
     Indication: HYPERTENSION
     Dosage: 50 MG, HS
     Route: 048
     Dates: start: 19990101
  3. ASPIRIN [Suspect]
     Indication: STENT PLACEMENT
     Dosage: 81 MG, HS
     Dates: start: 20120319
  4. NORVASC [Concomitant]
     Indication: HYPERTENSION
     Dosage: 2.5 MG, HS
     Route: 048
     Dates: start: 19990101
  5. XARELTO [Interacting]
     Indication: ATRIAL FIBRILLATION
     Dosage: 20 MG, HS
     Route: 048
     Dates: start: 20120227, end: 20120328
  6. ZYRTEC [Concomitant]
     Indication: MULTIPLE ALLERGIES
     Dosage: 10 MG, HS
     Route: 048

REACTIONS (6)
  - INTENTIONAL DRUG MISUSE [None]
  - BLISTER [None]
  - HAEMORRHOIDAL HAEMORRHAGE [None]
  - ABDOMINAL DISCOMFORT [None]
  - ABDOMINAL PAIN UPPER [None]
  - GENITAL LESION [None]
